FAERS Safety Report 5849228-4 (Version None)
Quarter: 2008Q3

REPORT INFORMATION
  Report Type: 
  Country: None (occurrence: None)
  Receive Date: 20080815
  Receipt Date: 20080804
  Transmission Date: 20090109
  Serious: Yes (Life-Threatening, Hospitalization)
  Sender: FDA-Public Use
  Company Number: 237362J08USA

PATIENT
  Age: 22 Year
  Sex: Female
  Weight: 79.3795 kg

DRUGS (3)
  1. REBIF [Suspect]
     Indication: MULTIPLE SCLEROSIS
     Dosage: 44 MCG, 3 IN 1 WEEKS, SUBCUTANEOUS
     Route: 058
     Dates: start: 20080317, end: 20080730
  2. CONCERTA [Concomitant]
  3. ASPRIN (ACETYLSALICYLIC ACID) [Concomitant]

REACTIONS (6)
  - ASTHENIA [None]
  - DYSPNOEA [None]
  - ENCEPHALITIS VIRAL [None]
  - HYPERSOMNIA [None]
  - MYELITIS TRANSVERSE [None]
  - PYREXIA [None]
